FAERS Safety Report 18923819 (Version 1)
Quarter: 2021Q1

REPORT INFORMATION
  Report Type: Spontaneous
  Country: KP (occurrence: KP)
  Receive Date: 20210222
  Receipt Date: 20210222
  Transmission Date: 20210420
  Serious: Yes (Life-Threatening, Other)
  Sender: FDA-Public Use
  Company Number: KP-HQ SPECIALTY-KP-2021INT000029

PATIENT
  Age: 64 Year
  Sex: Female

DRUGS (2)
  1. CISPLATIN. [Suspect]
     Active Substance: CISPLATIN
     Indication: CHOLANGIOCARCINOMA
     Dosage: CUMULATIVE DOSE, 240 MG/M2, AT 3?WEEK INTERVALS
     Route: 065
  2. GEMCITABINE. [Suspect]
     Active Substance: GEMCITABINE
     Indication: CHOLANGIOCARCINOMA
     Dosage: UNK, 3?WEEK INTERVALS
     Route: 065

REACTIONS (1)
  - Atrioventricular block complete [Recovered/Resolved]
